FAERS Safety Report 5049383-2 (Version None)
Quarter: 2006Q3

REPORT INFORMATION
  Report Type: 
  Country: None (occurrence: None)
  Receive Date: 20060707
  Receipt Date: 20060627
  Transmission Date: 20061208
  Serious: Yes (Other)
  Sender: FDA-Public Use
  Company Number: 200612716BCC

PATIENT
  Age: 52 Year
  Sex: Female
  Weight: 70.3075 kg

DRUGS (3)
  1. ONE A DAY ESSENTIALS [Suspect]
     Indication: VITAMIN SUPPLEMENTATION
     Dosage: ORAL
     Route: 048
     Dates: start: 20060301, end: 20060509
  2. ONE A DAY ESSENTIALS [Suspect]
     Indication: VITAMIN SUPPLEMENTATION
     Dosage: ORAL
     Route: 048
     Dates: start: 20060523, end: 20060605
  3. CITRUCEL PRENATAL VITAMINS (METHYLCELLULOSE) [Suspect]
     Dosage: ORAL
     Route: 048
     Dates: start: 20060509, end: 20060614

REACTIONS (2)
  - ABORTION SPONTANEOUS [None]
  - DRUG EXPOSURE DURING PREGNANCY [None]
